FAERS Safety Report 15153260 (Version 1)
Quarter: 2018Q3

REPORT INFORMATION
  Report Type: Spontaneous
  Country: US (occurrence: US)
  Receive Date: 20180619
  Receipt Date: 20180619
  Transmission Date: 20181010
  Serious: Yes (Hospitalization, Disabling, Other)
  Sender: FDA-Public Use
  Company Number: None

PATIENT
  Age: 37 Year
  Sex: Female
  Weight: 65.7 kg

DRUGS (4)
  1. DEPO?PROVERA [Suspect]
     Active Substance: MEDROXYPROGESTERONE ACETATE
     Indication: CONTRACEPTION
     Dosage: ?          QUANTITY:1 INJECTION(S);OTHER FREQUENCY:ONCE EVERY 3 MONTH;OTHER ROUTE:INJECTION IN BUTTOX?
     Dates: start: 20080601, end: 20180601
  2. HERBAL TEAS [Concomitant]
     Active Substance: HERBALS
  3. PAIN RELIEVERS [Concomitant]
  4. DEPO?PROVERA [Suspect]
     Active Substance: MEDROXYPROGESTERONE ACETATE
     Indication: MENORRHAGIA
     Dosage: ?          QUANTITY:1 INJECTION(S);OTHER FREQUENCY:ONCE EVERY 3 MONTH;OTHER ROUTE:INJECTION IN BUTTOX?
     Dates: start: 20080601, end: 20180601

REACTIONS (11)
  - Pain in extremity [None]
  - Headache [None]
  - Quality of life decreased [None]
  - Anxiety [None]
  - Back pain [None]
  - Cyst [None]
  - Emotional disorder [None]
  - Surgery [None]
  - Fracture [None]
  - Tooth fracture [None]
  - Mental disorder [None]

NARRATIVE: CASE EVENT DATE: 20180101
